FAERS Safety Report 9511897 (Version 2)
Quarter: 2013Q3

REPORT INFORMATION
  Report Type: Spontaneous
  Country: US (occurrence: US)
  Receive Date: 20130910
  Receipt Date: 20130925
  Transmission Date: 20140515
  Serious: No
  Sender: FDA-Public Use
  Company Number: US-009507513-1309USA003737

PATIENT
  Sex: Female

DRUGS (1)
  1. STROMECTOL [Suspect]
     Dosage: 5 LAST NIGHT AND 5 THIS MORNING
     Route: 048
     Dates: start: 20130905, end: 20130906

REACTIONS (3)
  - Drug dose omission [Unknown]
  - No adverse event [Unknown]
  - Product blister packaging issue [Unknown]
